FAERS Safety Report 16660305 (Version 1)
Quarter: 2019Q3

REPORT INFORMATION
  Report Type: Spontaneous
  Country: ES (occurrence: ES)
  Receive Date: 20190802
  Receipt Date: 20190802
  Transmission Date: 20191004
  Serious: Yes (Other)
  Sender: FDA-Public Use
  Company Number: ES-TEVA-2019-ES-1086813

PATIENT
  Age: 49 Year
  Sex: Male
  Weight: 86 kg

DRUGS (5)
  1. LORAZEPAM (1864A) [Concomitant]
     Active Substance: LORAZEPAM
     Indication: DEPRESSION
     Dosage: 1 MG
     Route: 048
     Dates: start: 20160302
  2. PREDNISONA (886A) [Suspect]
     Active Substance: PREDNISONE
     Indication: PSORIASIS
     Dosage: 10 MG
     Route: 048
     Dates: start: 20170116
  3. MIRTAZAPINA (2704A) [Concomitant]
     Active Substance: MIRTAZAPINE
     Indication: DEPRESSION
     Dosage: 30 MG
     Route: 048
     Dates: start: 20160302
  4. APREMILAST (9109A) [Interacting]
     Active Substance: APREMILAST
     Indication: PSORIASIS
     Dosage: 30 MG
     Route: 048
     Dates: start: 20130722
  5. LEVETIRACETAM (1167A) [Concomitant]
     Active Substance: LEVETIRACETAM
     Indication: EPILEPSY
     Dosage: 500 MG
     Route: 048
     Dates: start: 20160302

REACTIONS (2)
  - Drug interaction [Unknown]
  - Varicella zoster pneumonia [Recovered/Resolved]

NARRATIVE: CASE EVENT DATE: 20180223
